FAERS Safety Report 7721236-8 (Version None)
Quarter: 2011Q3

REPORT INFORMATION
  Report Type: 
  Country: None (occurrence: None)
  Receive Date: 20110831
  Receipt Date: 20110824
  Transmission Date: 20111222
  Serious: Yes (Death, Other)
  Sender: FDA-Public Use
  Company Number: SK-CELGENEUS-260-21880-10092617

PATIENT
  Age: 76 Year
  Sex: Male

DRUGS (3)
  1. DEXAMETHASONE [Concomitant]
     Route: 065
     Dates: start: 20100501
  2. HEPARIN [Concomitant]
     Indication: PROPHYLAXIS
     Route: 065
  3. REVLIMID [Suspect]
     Indication: MULTIPLE MYELOMA
     Route: 048
     Dates: start: 20100401, end: 20100101

REACTIONS (2)
  - THROMBOCYTOPENIA [None]
  - PROSTATE CANCER [None]
